FAERS Safety Report 8845302 (Version 1)
Quarter: 2012Q4

REPORT INFORMATION
  Report Type: 
  Country: FR (occurrence: FR)
  Receive Date: 20121017
  Receipt Date: 20121017
  Transmission Date: 20130627
  Serious: Yes (Hospitalization)
  Sender: FDA-Public Use
  Company Number: FR-PFIZER INC-2012254213

PATIENT
  Age: 42 Year
  Sex: Female

DRUGS (1)
  1. ADVILCAPS [Suspect]
     Indication: ARTHRALGIA
     Dosage: 400 mg, 3x/day
     Route: 048
     Dates: start: 201112, end: 20121213

REACTIONS (6)
  - Paraesthesia [Recovered/Resolved]
  - Lip oedema [Recovered/Resolved]
  - Tongue oedema [Recovered/Resolved]
  - Dysphagia [None]
  - Idiosyncratic drug reaction [None]
  - Arthralgia [None]
